FAERS Safety Report 16449171 (Version 1)
Quarter: 2019Q2

REPORT INFORMATION
  Report Type: Spontaneous
  Country: US (occurrence: US)
  Receive Date: 20190619
  Receipt Date: 20190619
  Transmission Date: 20190711
  Serious: Yes (Other)
  Sender: FDA-Public Use
  Company Number: US-AMGEN-USASP2019093141

PATIENT
  Age: 73 Year
  Sex: Female

DRUGS (1)
  1. PROLIA [Suspect]
     Active Substance: DENOSUMAB
     Indication: OSTEOPOROSIS POSTMENOPAUSAL
     Dosage: 60 MILLIGRAM
     Route: 065
     Dates: start: 2016

REACTIONS (6)
  - Bursitis [Unknown]
  - Spinal osteoarthritis [Unknown]
  - Spinal disorder [Unknown]
  - Osteoarthritis [Unknown]
  - Pruritus [Recovered/Resolved]
  - Sciatica [Recovering/Resolving]

NARRATIVE: CASE EVENT DATE: 2016
